FAERS Safety Report 4997518-X (Version None)
Quarter: 2006Q2

REPORT INFORMATION
  Report Type: 
  Country: None (occurrence: None)
  Receive Date: 20060509
  Receipt Date: 20060503
  Transmission Date: 20061013
  Serious: Yes (Death, Other)
  Sender: FDA-Public Use
  Company Number: AU-MERCK-0605AUS00051

PATIENT
  Age: 43 Year
  Sex: Male

DRUGS (14)
  1. CANCIDAS [Suspect]
     Route: 051
     Dates: start: 20050912, end: 20050915
  2. CYCLOSPORINE [Suspect]
     Route: 065
     Dates: start: 20050909
  3. AZITHROMYCIN [Concomitant]
     Route: 065
  4. ACYCLOVIR [Concomitant]
     Route: 065
  5. VANCOMYCIN HYDROCHLORIDE [Concomitant]
     Route: 065
  6. CIPROFLOXACIN [Concomitant]
     Route: 065
  7. DAPSONE [Concomitant]
     Route: 065
  8. ACETAMINOPHEN [Concomitant]
     Route: 065
  9. METHYLPREDNISOLONE [Concomitant]
     Route: 065
  10. HEPARIN SODIUM [Concomitant]
     Route: 065
  11. MORPHINE HYDROCHLORIDE [Concomitant]
     Route: 065
  12. MIDAZOLAM [Concomitant]
     Route: 065
  13. NOREPINEPHRINE HYDROCHLORIDE [Concomitant]
     Route: 065
  14. INSULIN, NEUTRAL [Concomitant]
     Route: 065

REACTIONS (5)
  - ALANINE AMINOTRANSFERASE INCREASED [None]
  - BLOOD ALKALINE PHOSPHATASE INCREASED [None]
  - DEATH [None]
  - GAMMA-GLUTAMYLTRANSFERASE INCREASED [None]
  - HEPATIC FUNCTION ABNORMAL [None]
